FAERS Safety Report 4422151-8 (Version None)
Quarter: 2004Q3

REPORT INFORMATION
  Report Type: 
  Country: None (occurrence: None)
  Receive Date: 20040806
  Receipt Date: 20040803
  Transmission Date: 20050211
  Serious: Yes (Death)
  Sender: FDA-Public Use
  Company Number: US-JNJFOC-20040703499

PATIENT
  Age: 77 Year
  Sex: Male
  Weight: 51.6193 kg

DRUGS (1)
  1. SPORANOX [Suspect]
     Indication: BRONCHOPULMONARY ASPERGILLOSIS
     Dosage: 10 ML, 2 IN 1 DAY, ORAL
     Route: 048
     Dates: start: 20040225, end: 20040501

REACTIONS (1)
  - DEATH [None]
